FAERS Safety Report 9689828 (Version 6)
Quarter: 2017Q3

REPORT INFORMATION
  Report Type: Report from Study
  Country: BE (occurrence: BE)
  Receive Date: 20131115
  Receipt Date: 20170814
  Transmission Date: 20171128
  Serious: Yes (Hospitalization)
  Sender: FDA-Public Use
  Company Number: BE-PFIZER INC-2013316730

PATIENT
  Age: 30 Year
  Sex: Male
  Weight: 73 kg

DRUGS (2)
  1. LITICAN [Concomitant]
     Active Substance: ALIZAPRIDE HYDROCHLORIDE
     Indication: NAUSEA
     Dosage: 50 MG (1 IN 1 AS NECESSARY )
     Route: 048
     Dates: start: 20130906
  2. CRIZOTINIB [Suspect]
     Active Substance: CRIZOTINIB
     Indication: ALVEOLAR RHABDOMYOSARCOMA
     Dosage: 250 MG, 2X/DAY
     Route: 048
     Dates: start: 20130906

REACTIONS (2)
  - Respiratory tract infection [Recovered/Resolved]
  - Systemic inflammatory response syndrome [Recovered/Resolved]

NARRATIVE: CASE EVENT DATE: 20131104
